FAERS Safety Report 7956843-0 (Version None)
Quarter: 2011Q4

REPORT INFORMATION
  Report Type: 
  Country: None (occurrence: None)
  Receive Date: 20111205
  Receipt Date: 20111021
  Transmission Date: 20120403
  Serious: No
  Sender: FDA-Public Use
  Company Number: US-BAYER-2011-103073

PATIENT

DRUGS (4)
  1. ACETAMINOPHEN [Concomitant]
  2. ALEVE (CAPLET) [Suspect]
     Indication: HEADACHE
  3. REBIF [Concomitant]
  4. LOCEPROX 4 MG [Concomitant]
     Indication: DEPRESSION

REACTIONS (1)
  - HEADACHE [None]
